FAERS Safety Report 7434524-X (Version None)
Quarter: 2011Q2

REPORT INFORMATION
  Report Type: 
  Country: None (occurrence: None)
  Receive Date: 20110420
  Receipt Date: 20110420
  Transmission Date: 20111010
  Serious: Yes (Other)
  Sender: FDA-Public Use
  Company Number: None

PATIENT
  Age: 74 Year
  Sex: Female
  Weight: 77.5651 kg

DRUGS (1)
  1. BONIVA [Suspect]
     Indication: OSTEOPOROSIS
     Dosage: 3MG/3ML EVERY 3 MONTHS IV
     Route: 042
     Dates: start: 20110127, end: 20110127

REACTIONS (3)
  - INFUSION SITE SWELLING [None]
  - INFUSION SITE PAIN [None]
  - INFUSION SITE ERYTHEMA [None]
